FAERS Safety Report 22596301 (Version 1)
Quarter: 2023Q2

REPORT INFORMATION
  Report Type: Report from Study
  Country: US (occurrence: US)
  Receive Date: 20230613
  Receipt Date: 20230613
  Transmission Date: 20230721
  Serious: Yes (Other)
  Sender: FDA-Public Use
  Company Number: US-INCYTE CORPORATION-2023IN006042

PATIENT

DRUGS (1)
  1. JAKAFI [Suspect]
     Active Substance: RUXOLITINIB
     Indication: Myeloproliferative neoplasm
     Route: 065

REACTIONS (7)
  - Myeloproliferative neoplasm [Unknown]
  - Bone pain [Unknown]
  - Myalgia [Unknown]
  - Renal disorder [Unknown]
  - Low density lipoprotein increased [Unknown]
  - Disease progression [Unknown]
  - Off label use [Unknown]
